FAERS Safety Report 7741960-0 (Version None)
Quarter: 2011Q3

REPORT INFORMATION
  Report Type: 
  Country: None (occurrence: None)
  Receive Date: 20110912
  Receipt Date: 20110830
  Transmission Date: 20111222
  Serious: No
  Sender: FDA-Public Use
  Company Number: US-JNJFOC-20110903069

PATIENT
  Sex: Female
  Weight: 72.58 kg

DRUGS (1)
  1. DURAGESIC-100 [Suspect]
     Indication: PAIN
     Dosage: 100 UG/HR X 2 = 200 UG/HR PATCHES
     Route: 062
     Dates: start: 20110501

REACTIONS (2)
  - RASH VESICULAR [None]
  - WRONG TECHNIQUE IN DRUG USAGE PROCESS [None]
